FAERS Safety Report 5250596-5 (Version None)
Quarter: 2007Q1

REPORT INFORMATION
  Report Type: 
  Country: None (occurrence: None)
  Receive Date: 20070228
  Receipt Date: 20060602
  Transmission Date: 20070707
  Serious: No
  Sender: FDA-Public Use
  Company Number: US-GLAXOSMITHKLINE-A0607763A

PATIENT
  Age: 47 Year
  Sex: Female

DRUGS (7)
  1. LAMICTAL [Suspect]
     Indication: DEPRESSION
     Dosage: 100MG PER DAY
     Route: 048
  2. NORTRIPTYLINE HCL [Suspect]
     Indication: DEPRESSION
     Dosage: 25MG PER DAY
     Dates: start: 20060528
  3. NORTRIPTYLINE HCL [Concomitant]
  4. LEXAPRO [Concomitant]
  5. SEREVENT [Concomitant]
  6. SYNTHROID [Concomitant]
  7. SINGULAIR [Concomitant]

REACTIONS (2)
  - PRURITUS [None]
  - RASH [None]
